FAERS Safety Report 11276046 (Version 1)
Quarter: 2015Q3

REPORT INFORMATION
  Report Type: Spontaneous
  Country: US (occurrence: None)
  Receive Date: 20150715
  Receipt Date: 20150715
  Transmission Date: 20151125
  Serious: Yes (Hospitalization)
  Sender: FDA-Public Use
  Company Number: None

PATIENT
  Age: 89 Year
  Sex: Male
  Weight: 78.1 kg

DRUGS (1)
  1. ELIQUIS [Suspect]
     Active Substance: APIXABAN

REACTIONS (5)
  - Renal cyst [None]
  - Pain in extremity [None]
  - Perirenal haematoma [None]
  - Haemorrhagic cyst [None]
  - Cerebrovascular accident [None]

NARRATIVE: CASE EVENT DATE: 20150707
